FAERS Safety Report 9919267 (Version 1)
Quarter: 2014Q1

REPORT INFORMATION
  Report Type: Report from Study
  Country: AU (occurrence: AU)
  Receive Date: 20140224
  Receipt Date: 20140224
  Transmission Date: 20141002
  Serious: Yes (Other)
  Sender: FDA-Public Use
  Company Number: AU-SA-2014SA018718

PATIENT
  Age: 50 Year
  Sex: Female

DRUGS (4)
  1. ARAVA [Suspect]
     Indication: PRODUCT USED FOR UNKNOWN INDICATION
     Route: 048
     Dates: start: 20120521, end: 201401
  2. METHOTREXATE [Concomitant]
  3. PREDNISONE [Concomitant]
  4. PANADOL OSTEO [Concomitant]

REACTIONS (3)
  - Pneumothorax [Recovering/Resolving]
  - Knee arthroplasty [Recovering/Resolving]
  - Infection [Recovering/Resolving]
